FAERS Safety Report 13422239 (Version 1)
Quarter: 2017Q2

REPORT INFORMATION
  Report Type: Spontaneous
  Country: CO (occurrence: CO)
  Receive Date: 20170410
  Receipt Date: 20170410
  Transmission Date: 20170830
  Serious: Yes (Other)
  Sender: FDA-Public Use
  Company Number: CO-009507513-1704COL002634

PATIENT
  Age: 34 Year
  Sex: Male

DRUGS (3)
  1. EMTRICITABINE [Concomitant]
     Active Substance: EMTRICITABINE
     Dosage: UNK
  2. TENOFOVIR [Concomitant]
     Active Substance: TENOFOVIR
     Dosage: UNK
  3. ISENTRESS [Suspect]
     Active Substance: RALTEGRAVIR POTASSIUM
     Indication: HIV INFECTION
     Dosage: UNK
     Route: 048

REACTIONS (2)
  - Tuberculosis [Not Recovered/Not Resolved]
  - Rhabdomyolysis [Unknown]
